FAERS Safety Report 13131742 (Version 1)
Quarter: 2017Q1

REPORT INFORMATION
  Report Type: Report from Study
  Country: US (occurrence: US)
  Receive Date: 20170119
  Receipt Date: 20170119
  Transmission Date: 20170428
  Serious: Yes (Other)
  Sender: FDA-Public Use
  Company Number: US-009507513-1701USA004498

PATIENT
  Age: 35 Year
  Sex: Female

DRUGS (12)
  1. NOVOLOG [Concomitant]
     Active Substance: INSULIN ASPART
     Indication: DIABETES MELLITUS
  2. AMBIEN [Concomitant]
     Active Substance: ZOLPIDEM TARTRATE
     Indication: HYPNOTHERAPY
  3. GABAPENTIN. [Concomitant]
     Active Substance: GABAPENTIN
     Indication: EPILEPSY
  4. IMPLANON [Suspect]
     Active Substance: ETONOGESTREL
     Indication: CHEMICAL CONTRACEPTION
     Dosage: 68 MG, ROUTE OF ADMINISTRATION: SYSTEMIC
     Dates: start: 20130924
  5. TRAMADOL HYDROCHLORIDE. [Concomitant]
     Active Substance: TRAMADOL HYDROCHLORIDE
     Indication: ANALGESIC THERAPY
  6. LANTUS [Concomitant]
     Active Substance: INSULIN GLARGINE
     Indication: DIABETES MELLITUS
  7. VALERIAN [Concomitant]
     Active Substance: VALERIAN
     Indication: HYPNOTHERAPY
  8. INSULIN [Concomitant]
     Active Substance: INSULIN NOS
     Indication: DIABETES MELLITUS
  9. VALERIAN [Concomitant]
     Active Substance: VALERIAN
     Indication: SEDATIVE THERAPY
  10. HEMP [Concomitant]
     Active Substance: HEMP
  11. IBUPROFEN. [Concomitant]
     Active Substance: IBUPROFEN
     Indication: ANALGESIC THERAPY
  12. AMBIEN [Concomitant]
     Active Substance: ZOLPIDEM TARTRATE
     Indication: SEDATIVE THERAPY

REACTIONS (1)
  - Deep vein thrombosis [Unknown]

NARRATIVE: CASE EVENT DATE: 20160103
